FAERS Safety Report 23639301 (Version 1)
Quarter: 2024Q1

REPORT INFORMATION
  Report Type: Spontaneous
  Country: IL (occurrence: None)
  Receive Date: 20240316
  Receipt Date: 20240316
  Transmission Date: 20240410
  Serious: Yes (Other)
  Sender: FDA-Public Use
  Company Number: IL-ROCHE-3522690

PATIENT
  Age: 31 Year
  Sex: Female
  Weight: 60 kg

DRUGS (8)
  1. ALECTINIB [Suspect]
     Active Substance: ALECTINIB
     Indication: Non-small cell lung cancer
     Route: 065
  2. ALECTINIB [Suspect]
     Active Substance: ALECTINIB
     Route: 065
  3. ALECTINIB [Suspect]
     Active Substance: ALECTINIB
     Route: 065
  4. ALECTINIB [Suspect]
     Active Substance: ALECTINIB
     Route: 065
  5. BRIGATINIB [Suspect]
     Active Substance: BRIGATINIB
     Indication: Non-small cell lung cancer
     Route: 065
  6. ELIQUIS [Concomitant]
     Active Substance: APIXABAN
     Indication: Hypercoagulation
     Dosage: PROPHYLAXIS
  7. LEVOFLOXACIN [Concomitant]
     Active Substance: LEVOFLOXACIN
  8. PREDNISONE [Concomitant]
     Active Substance: PREDNISONE

REACTIONS (10)
  - Non-small cell lung cancer [Unknown]
  - Wheezing [Unknown]
  - Lung disorder [Unknown]
  - Painful respiration [Unknown]
  - Diaphragmalgia [Unknown]
  - Pleuritic pain [Unknown]
  - Asthenia [Unknown]
  - Respiratory disorder [Unknown]
  - Drug resistance [Unknown]
  - Localised infection [Unknown]
